FAERS Safety Report 8966874 (Version 1)
Quarter: 2012Q4

REPORT INFORMATION
  Report Type: Report from Study
  Country: CH (occurrence: CH)
  Receive Date: 20121214
  Receipt Date: 20121214
  Transmission Date: 20130627
  Serious: Yes (Death, Hospitalization)
  Sender: FDA-Public Use
  Company Number: CH-BAXTER-2012BAX026383

PATIENT
  Age: 68 Year
  Sex: Male

DRUGS (6)
  1. ENDOXAN [Suspect]
     Indication: CHRONIC LYMPHOCYTIC LEUKEMIA
     Route: 042
     Dates: start: 20031011
  2. RITUXIMAB [Suspect]
     Indication: CHRONIC LYMPHOCYTIC LEUKEMIA
     Route: 042
     Dates: start: 20030515
  3. CLADRIBINE [Suspect]
     Indication: CHRONIC LYMPHOCYTIC LEUKEMIA
     Route: 058
     Dates: start: 20030417
  4. CARMUSTINE [Suspect]
     Indication: CHRONIC LYMPHOCYTIC LEUKEMIA
  5. CYTARABINE [Suspect]
     Indication: CHRONIC LYMPHOCYTIC LEUKEMIA
  6. MELPHALAN [Suspect]
     Indication: CHRONIC LYMPHOCYTIC LEUKEMIA

REACTIONS (1)
  - Non-small cell lung cancer [Fatal]
